FAERS Safety Report 9857394 (Version 3)
Quarter: 2014Q1

REPORT INFORMATION
  Report Type: Spontaneous
  Country: US (occurrence: US)
  Receive Date: 20140131
  Receipt Date: 20140317
  Transmission Date: 20141002
  Serious: Yes (Hospitalization, Other)
  Sender: FDA-Public Use
  Company Number: US-PFIZER INC-2014026287

PATIENT
  Age: 21 Year
  Sex: Male
  Weight: 61.68 kg

DRUGS (6)
  1. DILANTIN [Suspect]
     Indication: CONVULSION
     Dosage: 1 DF, 1X/DAY
     Route: 048
  2. DILANTIN [Suspect]
     Indication: EPILEPSY
     Dosage: 2 DF, 1X/DAY
     Route: 048
  3. DILANTIN [Suspect]
     Dosage: 3 DF, 1X/DAY
     Route: 048
  4. DILANTIN [Suspect]
     Dosage: 4 DF, 1X/DAY
     Route: 048
  5. DILANTIN [Suspect]
     Dosage: 400 MG, 1X/DAY (4 HS)
  6. DILANTIN [Suspect]
     Dosage: 100 MG (4 HS)

REACTIONS (8)
  - Fall [Unknown]
  - Head injury [Unknown]
  - Epilepsy [Unknown]
  - Convulsion [Unknown]
  - Urinary incontinence [Unknown]
  - Faecal incontinence [Unknown]
  - Learning disability [Unknown]
  - Reading disorder [Unknown]
